FAERS Safety Report 19819049 (Version 1)
Quarter: 2021Q3

REPORT INFORMATION
  Report Type: Spontaneous
  Country: US (occurrence: US)
  Receive Date: 20210913
  Receipt Date: 20210913
  Transmission Date: 20211014
  Serious: Yes (Other)
  Sender: FDA-Public Use
  Company Number: US-AVET LIFESCIENCES LTD-2021-AVET-000009

PATIENT
  Age: 61 Year
  Sex: Female

DRUGS (4)
  1. METFORMIN [Suspect]
     Active Substance: METFORMIN HYDROCHLORIDE
     Indication: PLASMA CELL MYELOMA
     Dosage: 500 MILLIGRAM, BID FOR 3 DAYS
  2. METFORMIN [Interacting]
     Active Substance: METFORMIN HYDROCHLORIDE
     Dosage: 1000 MILLIGRAM, BID, FOR 4 DAYS
  3. RITONAVIR. [Interacting]
     Active Substance: RITONAVIR
     Indication: PLASMA CELL MYELOMA
     Dosage: 300 MILLIGRAM, BID
  4. RITONAVIR. [Interacting]
     Active Substance: RITONAVIR
     Dosage: INCREASED BY 100 MG TWICE DAILY FOR AT LEAST 3 DAYS UP TO A MAXIMUM OF 800 MG TWICE DAILY

REACTIONS (8)
  - Nausea [Unknown]
  - Drug interaction [Unknown]
  - Diarrhoea [Recovering/Resolving]
  - Hypokalaemia [Unknown]
  - Dehydration [Unknown]
  - Urinary tract infection [Unknown]
  - Lactic acidosis [Unknown]
  - Off label use [Unknown]
